FAERS Safety Report 17614466 (Version 2)
Quarter: 2020Q2

REPORT INFORMATION
  Report Type: Report from Study
  Country: TW (occurrence: TW)
  Receive Date: 20200402
  Receipt Date: 20200417
  Transmission Date: 20200713
  Serious: Yes (Death, Other)
  Sender: FDA-Public Use
  Company Number: TW-BRISTOL-MYERS SQUIBB COMPANY-BMS-2020-026523

PATIENT
  Age: 66 Year
  Sex: Female

DRUGS (1)
  1. ABATACEPT [Suspect]
     Active Substance: ABATACEPT
     Indication: RHEUMATOID ARTHRITIS
     Dosage: 500 MILLIGRAM
     Route: 042
     Dates: start: 20200213

REACTIONS (6)
  - Pneumonia [Fatal]
  - Nasopharyngitis [Unknown]
  - Gastrointestinal haemorrhage [Unknown]
  - Acute respiratory distress syndrome [Unknown]
  - Renal failure [Unknown]
  - Pyrexia [Unknown]

NARRATIVE: CASE EVENT DATE: 202003
